FAERS Safety Report 16978445 (Version 1)
Quarter: 2019Q4

REPORT INFORMATION
  Report Type: Spontaneous
  Country: US (occurrence: US)
  Receive Date: 20191031
  Receipt Date: 20191031
  Transmission Date: 20200122
  Serious: Yes (Other)
  Sender: FDA-Public Use
  Company Number: US-AMGEN-USASP2019178410

PATIENT
  Age: 72 Year
  Sex: Female

DRUGS (4)
  1. PROLIA [Suspect]
     Active Substance: DENOSUMAB
     Indication: OSTEOPOROSIS POSTMENOPAUSAL
     Dosage: 60 MILLIGRAM, Q8MO
     Route: 065
  2. RAMIPRIL. [Concomitant]
     Active Substance: RAMIPRIL
  3. OMEPRAZOLE. [Concomitant]
     Active Substance: OMEPRAZOLE
  4. BUPROPION. [Concomitant]
     Active Substance: BUPROPION

REACTIONS (1)
  - Nerve injury [Unknown]

NARRATIVE: CASE EVENT DATE: 201910
